FAERS Safety Report 6630405-X (Version None)
Quarter: 2010Q1

REPORT INFORMATION
  Report Type: 
  Country: None (occurrence: None)
  Receive Date: 20100311
  Receipt Date: 20090619
  Transmission Date: 20100710
  Serious: No
  Sender: FDA-Public Use
  Company Number: US-BIOGENIDEC-2009BI018796

PATIENT
  Age: 42 Year
  Sex: Female

DRUGS (4)
  1. AVONEX [Suspect]
     Indication: MULTIPLE SCLEROSIS
     Route: 030
     Dates: start: 20090422, end: 20090505
  2. AVONEX [Suspect]
     Route: 030
     Dates: start: 20090506, end: 20090519
  3. AVONEX [Suspect]
     Route: 030
     Dates: start: 20090520, end: 20090602
  4. AVONEX [Suspect]
     Route: 030
     Dates: start: 20090603

REACTIONS (2)
  - INJECTION SITE HAEMATOMA [None]
  - TREMOR [None]
